FAERS Safety Report 5511590-X (Version None)
Quarter: 2007Q4

REPORT INFORMATION
  Report Type: 
  Country: None (occurrence: None)
  Receive Date: 20071109
  Receipt Date: 20071106
  Transmission Date: 20080405
  Serious: Yes (Hospitalization)
  Sender: FDA-Public Use
  Company Number: NL-ASTRAZENECA-2007AC02144

PATIENT
  Age: 47 Year
  Sex: Male

DRUGS (5)
  1. SEROQUEL [Suspect]
     Indication: PSYCHOTIC DISORDER
     Route: 048
  2. SEROQUEL [Suspect]
     Dosage: REDUCED DOSE
     Route: 048
  3. BUPROPION HCL [Concomitant]
  4. BUPROPION HCL [Concomitant]
     Dosage: DOSE REDUCED
  5. PROMETHAZINE [Concomitant]

REACTIONS (2)
  - SEXUAL DYSFUNCTION [None]
  - SUICIDAL IDEATION [None]
